FAERS Safety Report 17813120 (Version 6)
Quarter: 2022Q2

REPORT INFORMATION
  Report Type: Spontaneous
  Country: CA (occurrence: CA)
  Receive Date: 20200521
  Receipt Date: 20220421
  Transmission Date: 20220721
  Serious: Yes (Death, Other)
  Sender: FDA-Public Use
  Company Number: CA-SAMSUNG BIOEPIS-SB-2020-17282

PATIENT
  Age: 52 Year
  Sex: Male
  Weight: 105 kg

DRUGS (2)
  1. INFLIXIMAB [Suspect]
     Active Substance: INFLIXIMAB
     Indication: Crohn^s disease
     Route: 042
  2. PREDNISONE [Concomitant]
     Active Substance: PREDNISONE
     Indication: Product used for unknown indication
     Dosage: UNKNOWN
     Route: 065

REACTIONS (21)
  - Abdominal distension [Fatal]
  - Back pain [Fatal]
  - Condition aggravated [Fatal]
  - Fatigue [Fatal]
  - Nausea [Fatal]
  - Pyoderma gangrenosum [Fatal]
  - Visual impairment [Fatal]
  - Poor venous access [Fatal]
  - Blood pressure increased [Fatal]
  - Abscess limb [Fatal]
  - Arthralgia [Fatal]
  - Blister [Fatal]
  - Diabetes mellitus [Fatal]
  - End stage renal disease [Fatal]
  - Malaise [Fatal]
  - Drug level increased [Fatal]
  - Drug level decreased [Fatal]
  - Drug ineffective [Fatal]
  - Inappropriate schedule of product administration [Fatal]
  - Off label use [Fatal]
  - Product dose omission issue [Fatal]
